FAERS Safety Report 5781522-8 (Version None)
Quarter: 2008Q2

REPORT INFORMATION
  Report Type: 
  Country: None (occurrence: None)
  Receive Date: 20080623
  Receipt Date: 20080612
  Transmission Date: 20081010
  Serious: Yes (Hospitalization, Other)
  Sender: FDA-Public Use
  Company Number: GB-BAXTER-2008BH005027

PATIENT
  Age: 76 Year
  Sex: Female
  Weight: 55 kg

DRUGS (17)
  1. EXTRANEAL [Suspect]
     Indication: PERITONEAL DIALYSIS
     Route: 033
     Dates: start: 20071109, end: 20071109
  2. EXTRANEAL [Suspect]
     Route: 033
     Dates: start: 20071109, end: 20071109
  3. DIANEAL [Suspect]
     Indication: PERITONEAL DIALYSIS
     Route: 033
     Dates: start: 20071109, end: 20071109
  4. DIANEAL [Suspect]
     Route: 033
     Dates: start: 20071109, end: 20071109
  5. DIANEAL [Suspect]
     Route: 033
     Dates: start: 20071109, end: 20071109
  6. DIANEAL [Suspect]
     Route: 033
     Dates: start: 20071109, end: 20071109
  7. ARANESP [Concomitant]
     Dates: start: 20070815
  8. ATORVASTATIN [Concomitant]
     Route: 048
     Dates: start: 20040706
  9. BISOPROLOL FUMARATE [Concomitant]
     Route: 048
     Dates: start: 20080513
  10. DOCUSATE SODIUM [Concomitant]
     Route: 048
     Dates: start: 20070628
  11. EZETIMIBE [Concomitant]
     Route: 048
     Dates: start: 20060627
  12. FORTISIP [Concomitant]
     Route: 048
     Dates: start: 20080218
  13. MIXTARD HUMAN 70/30 [Concomitant]
  14. LACTULOSE [Concomitant]
  15. OMEPRAZOLE [Concomitant]
     Route: 048
     Dates: start: 20080513
  16. SENNA [Concomitant]
     Dates: start: 20070628
  17. WARFARIN SODIUM [Concomitant]
     Dates: start: 20080215

REACTIONS (4)
  - NAUSEA [None]
  - PERITONITIS BACTERIAL [None]
  - PYREXIA [None]
  - VOMITING [None]
